FAERS Safety Report 9036162 (Version 1)
Quarter: 2013Q1

REPORT INFORMATION
  Report Type: Spontaneous
  Country: DK (occurrence: None)
  Receive Date: 20130116
  Receipt Date: 20130116
  Transmission Date: 20140127
  Serious: Yes (Hospitalization)
  Sender: FDA-Public Use
  Company Number: 2013MA000358

PATIENT
  Age: 71 Year
  Sex: Male

DRUGS (9)
  1. BUTALBITAL, ASPIRIN AND CAFFEINE TABLETS, USP 50 MG/325 MG/40 MG (PUREPAC) (BUTALBITAL W/ASPIRIN, CAFFEINE) [Suspect]
     Indication: PRODUCT USED FOR UNKNOWN INDICATION
     Dates: start: 20090122
  2. CLOPIDOGREL (CLOPIDOGREL) [Suspect]
     Indication: PRODUCT USED FOR UNKNOWN INDICATION
     Dates: start: 20090122, end: 20090323
  3. SIMVASTATIN [Concomitant]
  4. PARACETAMOL [Concomitant]
  5. LANSOPRAZOLE [Concomitant]
  6. GABAPENTIN [Concomitant]
  7. MAGNESIUM OXIDE [Concomitant]
  8. METOPROLOL [Concomitant]
  9. BLINDED STUDY MEDICATION [Concomitant]

REACTIONS (1)
  - Haematuria [None]
